FAERS Safety Report 9982432 (Version 1)
Quarter: 2014Q1

REPORT INFORMATION
  Report Type: Report from Study
  Country: US (occurrence: US)
  Receive Date: 20140307
  Receipt Date: 20140307
  Transmission Date: 20141002
  Serious: No
  Sender: FDA-Public Use
  Company Number: US-ABBVIE-13P-163-1180327-00

PATIENT
  Age: 66 Year
  Sex: Female

DRUGS (6)
  1. HUMIRA [Suspect]
     Indication: CROHN^S DISEASE
     Dates: start: 20131202
  2. METFORMIN [Concomitant]
     Indication: DIABETES MELLITUS
  3. CLARITIN [Concomitant]
     Indication: MULTIPLE ALLERGIES
  4. FLONASE [Concomitant]
     Indication: HYPERSENSITIVITY
     Dosage: 2 SPRAYS EACH NOSTRIL
  5. TYLENOL [Concomitant]
     Indication: HEADACHE
  6. TYLENOL [Concomitant]
     Indication: PAIN

REACTIONS (2)
  - Injection site pain [Recovered/Resolved]
  - Injection site bruising [Recovered/Resolved]
